FAERS Safety Report 16732217 (Version 6)
Quarter: 2020Q1

REPORT INFORMATION
  Report Type: Spontaneous
  Country: US (occurrence: US)
  Receive Date: 20190822
  Receipt Date: 20200312
  Transmission Date: 20200409
  Serious: No
  Sender: FDA-Public Use
  Company Number: US-ACTELION-A-US2019-194516

PATIENT
  Age: 76 Year
  Sex: Female
  Weight: 49.43 kg

DRUGS (4)
  1. UPTRAVI [Suspect]
     Active Substance: SELEXIPAG
     Indication: PULMONARY ARTERIAL HYPERTENSION
     Dosage: 200 MCG, BID
     Route: 048
  2. UPTRAVI [Suspect]
     Active Substance: SELEXIPAG
     Dosage: 200 MCG, QD
     Route: 048
  3. UPTRAVI [Suspect]
     Active Substance: SELEXIPAG
     Dosage: 400 MCG, BID
     Route: 048
  4. ADEMPAS [Suspect]
     Active Substance: RIOCIGUAT
     Indication: PRODUCT USED FOR UNKNOWN INDICATION
     Dosage: UNK
     Route: 065

REACTIONS (26)
  - Pain in extremity [Unknown]
  - Eructation [Unknown]
  - Blood pressure decreased [Unknown]
  - Weight decreased [Unknown]
  - Influenza like illness [Unknown]
  - Malaise [Unknown]
  - Myalgia [Unknown]
  - Abdominal discomfort [Unknown]
  - Oral discomfort [Unknown]
  - Pain [Unknown]
  - Gastrooesophageal reflux disease [Unknown]
  - Neck pain [Unknown]
  - Dysphagia [Unknown]
  - Drug intolerance [Unknown]
  - Dysgeusia [Unknown]
  - Back pain [Unknown]
  - Feeling abnormal [Unknown]
  - Abdominal pain upper [Unknown]
  - Dizziness [Unknown]
  - Headache [Unknown]
  - Decreased appetite [Unknown]
  - Visual impairment [Unknown]
  - Thinking abnormal [Unknown]
  - Dyspnoea [Unknown]
  - Osteoporosis [Unknown]
  - Flatulence [Unknown]

NARRATIVE: CASE EVENT DATE: 20190819
